FAERS Safety Report 16525174 (Version 1)
Quarter: 2019Q3

REPORT INFORMATION
  Report Type: Report from Study
  Country: US (occurrence: US)
  Receive Date: 20190703
  Receipt Date: 20190703
  Transmission Date: 20191004
  Serious: Yes (Hospitalization, Other)
  Sender: FDA-Public Use
  Company Number: US-ROCHE-2345880

PATIENT
  Age: 72 Year
  Sex: Male
  Weight: 94.43 kg

DRUGS (20)
  1. VENETOCLAX. [Suspect]
     Active Substance: VENETOCLAX
     Route: 048
     Dates: start: 20160616, end: 20160622
  2. CEFUROXIME. [Concomitant]
     Active Substance: CEFUROXIME
     Indication: NASOPHARYNGITIS
     Dosage: 500 MG 2 IN 1 D
     Route: 048
     Dates: start: 20170712, end: 20170716
  3. CEFUROXIME. [Concomitant]
     Active Substance: CEFUROXIME
     Indication: COUGH
  4. FLOMAX [Concomitant]
     Active Substance: TAMSULOSIN HYDROCHLORIDE
     Indication: POLLAKIURIA
     Route: 048
     Dates: start: 2008
  5. VICKS NYQUIL [Concomitant]
     Active Substance: ACETAMINOPHEN\DEXTROMETHORPHAN HYDROBROMIDE\DOXYLAMINE SUCCINATE
     Indication: NASOPHARYNGITIS
     Route: 048
  6. DEXTROMETHORPHAN HYDROBROMIDE. [Concomitant]
     Active Substance: DEXTROMETHORPHAN HYDROBROMIDE
     Indication: NASOPHARYNGITIS
     Route: 048
  7. LORAZEPAM. [Concomitant]
     Active Substance: LORAZEPAM
     Indication: ANXIETY
  8. VENETOCLAX. [Suspect]
     Active Substance: VENETOCLAX
     Route: 048
     Dates: start: 20160602, end: 20160608
  9. VENETOCLAX. [Suspect]
     Active Substance: VENETOCLAX
     Route: 048
     Dates: start: 20160609, end: 20160615
  10. HYDROCHLOROTHIAZIDE. [Concomitant]
     Active Substance: HYDROCHLOROTHIAZIDE
     Indication: BLOOD PRESSURE MEASUREMENT
     Route: 048
     Dates: start: 20170610
  11. LORAZEPAM. [Concomitant]
     Active Substance: LORAZEPAM
     Indication: PANIC ATTACK
     Dosage: AS NEEDED
     Route: 048
     Dates: start: 2010
  12. VENETOCLAX. [Suspect]
     Active Substance: VENETOCLAX
     Indication: CHRONIC LYMPHOCYTIC LEUKAEMIA
     Dosage: 6 DAYS: ONGOING: NO
     Route: 048
     Dates: start: 20160526, end: 20160601
  13. ACYCLOVIR [ACICLOVIR] [Concomitant]
     Active Substance: ACYCLOVIR
     Route: 048
     Dates: start: 20160524
  14. MELOXICAM. [Concomitant]
     Active Substance: MELOXICAM
     Indication: BACK PAIN
     Route: 048
  15. MELOXICAM. [Concomitant]
     Active Substance: MELOXICAM
     Indication: SCIATICA
  16. VENETOCLAX. [Suspect]
     Active Substance: VENETOCLAX
     Route: 048
     Dates: start: 20160623, end: 20170620
  17. ASPIRIN [ACETYLSALICYLIC ACID] [Concomitant]
     Active Substance: ASPIRIN
     Dosage: ONGOING: UNKNOWN
     Route: 048
     Dates: start: 2014
  18. RITUXIMAB. [Suspect]
     Active Substance: RITUXIMAB
     Indication: PRODUCT USED FOR UNKNOWN INDICATION
     Route: 065
  19. PRAVASTATIN. [Concomitant]
     Active Substance: PRAVASTATIN
     Route: 048
     Dates: start: 201605
  20. CBD OIL [Concomitant]
     Active Substance: CANNABIDIOL\HERBALS

REACTIONS (16)
  - Muscular weakness [Unknown]
  - Confusional state [Unknown]
  - Fall [Unknown]
  - Asthenia [Unknown]
  - Platelet count decreased [Unknown]
  - Loss of consciousness [Recovered/Resolved]
  - White blood cell count increased [Recovered/Resolved]
  - Fall [Unknown]
  - Vertigo [Unknown]
  - Somnolence [Unknown]
  - Micturition urgency [Unknown]
  - Haemoglobin abnormal [Unknown]
  - White blood cell count increased [Unknown]
  - Haematocrit abnormal [Unknown]
  - Drug ineffective [Unknown]
  - Immune system disorder [Unknown]

NARRATIVE: CASE EVENT DATE: 20170620
